FAERS Safety Report 9671871 (Version 2)
Quarter: 2014Q1

REPORT INFORMATION
  Report Type: Spontaneous
  Country: US (occurrence: US)
  Receive Date: 20131106
  Receipt Date: 20140325
  Transmission Date: 20141002
  Serious: Yes (Other)
  Sender: FDA-Public Use
  Company Number: US-BRISTOL-MYERS SQUIBB COMPANY-19679331

PATIENT
  Age: 66 Year
  Sex: Female
  Weight: 78 kg

DRUGS (9)
  1. BYETTA [Suspect]
     Indication: TYPE 2 DIABETES MELLITUS
     Dates: start: 200806
  2. VITAMIN D [Concomitant]
     Dosage: 2000 UTS A DAY-1DF
  3. FISH OIL [Concomitant]
     Dosage: 1DF:500 UTS
  4. LABETALOL [Concomitant]
     Route: 048
  5. SIMVASTATIN [Concomitant]
     Dosage: 1DF:40/D
  6. METFORMIN [Concomitant]
     Dosage: 1DF:500/D
  7. HYDROCHLOROTHIAZIDE [Concomitant]
     Dosage: 12.5/D
  8. VESICARE [Concomitant]
  9. ASPIRIN [Concomitant]

REACTIONS (1)
  - Pancreatic carcinoma [Recovering/Resolving]
